FAERS Safety Report 25646467 (Version 2)
Quarter: 2025Q3

REPORT INFORMATION
  Report Type: Spontaneous
  Country: EU (occurrence: EU)
  Receive Date: 20250805
  Receipt Date: 20250917
  Transmission Date: 20251021
  Serious: Yes (Death, Other)
  Sender: BAUSCH AND LOMB
  Company Number: EU-UCBSA-2025045607

PATIENT
  Age: 67 Year
  Sex: Male
  Weight: 134 kg

DRUGS (3)
  1. AZATHIOPRINE [Suspect]
     Active Substance: AZATHIOPRINE
     Indication: Myasthenia gravis
     Dosage: 200 MILLIGRAM, ONCE DAILY (QD)
     Route: 048
     Dates: start: 202404
  2. AZATHIOPRINE [Suspect]
     Active Substance: AZATHIOPRINE
     Dosage: 300 MILLIGRAM, ONCE DAILY (QD)
     Route: 048
  3. ZILBRYSQ [Suspect]
     Active Substance: ZILUCOPLAN
     Indication: Myasthenia gravis
     Dosage: 32.4 MILLIGRAM, ONCE DAILY (QD)
     Route: 058
     Dates: start: 202505

REACTIONS (4)
  - Pancytopenia [Fatal]
  - Hepatic failure [Fatal]
  - Septic shock [Fatal]
  - Pulmonary sepsis [Fatal]

NARRATIVE: CASE EVENT DATE: 20250716
